FAERS Safety Report 22019569 (Version 15)
Quarter: 2024Q4

REPORT INFORMATION
  Report Type: Report from Study
  Country: US (occurrence: US)
  Receive Date: 20230222
  Receipt Date: 20241213
  Transmission Date: 20250115
  Serious: Yes (Other)
  Sender: NOVARTIS
  Company Number: US-002147023-NVSC2023US035544

PATIENT
  Age: 66 Year
  Sex: Male

DRUGS (5)
  1. KESIMPTA [Suspect]
     Active Substance: OFATUMUMAB
     Indication: Product used for unknown indication
     Dosage: UNK, QMO
     Route: 065
     Dates: start: 20230210
  2. KESIMPTA [Suspect]
     Active Substance: OFATUMUMAB
     Dosage: UNK, 28D
     Route: 065
  3. AVONEX [Concomitant]
     Active Substance: INTERFERON BETA-1A
     Indication: Product used for unknown indication
     Dosage: UNK
     Route: 065
  4. ADVIL [Concomitant]
     Active Substance: IBUPROFEN
     Indication: Product used for unknown indication
     Dosage: UNK
     Route: 065
  5. TYLENOL [Concomitant]
     Active Substance: ACETAMINOPHEN
     Indication: Product used for unknown indication
     Dosage: UNK
     Route: 065

REACTIONS (31)
  - Urinary retention [Unknown]
  - Prostatic disorder [Unknown]
  - Temperature intolerance [Unknown]
  - Stress [Unknown]
  - Muscular weakness [Unknown]
  - Illness [Unknown]
  - Cold sweat [Unknown]
  - Dizziness [Unknown]
  - Musculoskeletal stiffness [Unknown]
  - Gait disturbance [Unknown]
  - Pain in extremity [Unknown]
  - Feeling abnormal [Unknown]
  - Tinnitus [Unknown]
  - COVID-19 [Unknown]
  - Pain [Unknown]
  - Influenza like illness [Unknown]
  - Headache [Unknown]
  - Pyrexia [Unknown]
  - Asthenia [Unknown]
  - Chills [Unknown]
  - Malaise [Unknown]
  - Balance disorder [Unknown]
  - Injection related reaction [Unknown]
  - Myalgia [Unknown]
  - Fatigue [Unknown]
  - Respiratory tract infection viral [Unknown]
  - Conjunctivitis [Unknown]
  - Drug ineffective [Unknown]
  - Inappropriate schedule of product administration [Unknown]
  - Mobility decreased [Unknown]
  - Coordination abnormal [Unknown]

NARRATIVE: CASE EVENT DATE: 20230210
